FAERS Safety Report 19024672 (Version 1)
Quarter: 2021Q1

REPORT INFORMATION
  Report Type: Spontaneous
  Country: US (occurrence: US)
  Receive Date: 20210316
  Receipt Date: 20210316
  Transmission Date: 20210420
  Serious: Yes (Hospitalization)
  Sender: FDA-Public Use
  Company Number: None

PATIENT
  Age: 68 Year
  Sex: Male

DRUGS (1)
  1. INSULIN (INSULIN, ASPART,HUMAN 100 UNT/ML INJ) [Suspect]
     Active Substance: INSULIN ASPART
     Indication: DIABETES MELLITUS
     Dates: start: 20201119

REACTIONS (2)
  - Syncope [None]
  - Hypoglycaemia [None]

NARRATIVE: CASE EVENT DATE: 20210129
